FAERS Safety Report 12765174 (Version 2)
Quarter: 2016Q3

REPORT INFORMATION
  Report Type: Spontaneous
  Country: US (occurrence: US)
  Receive Date: 20160921
  Receipt Date: 20160921
  Transmission Date: 20161109
  Serious: Yes (Other)
  Sender: FDA-Public Use
  Company Number: US-TEVA-693701ACC

PATIENT
  Age: 27 Year
  Sex: Female
  Weight: 87.17 kg

DRUGS (3)
  1. PLAN B ONE-STEP [Suspect]
     Active Substance: LEVONORGESTREL
     Indication: POST COITAL CONTRACEPTION
     Dates: start: 20160317, end: 20160317
  2. PLAN B ONE-STEP [Suspect]
     Active Substance: LEVONORGESTREL
     Dates: start: 20160329, end: 20160329
  3. PLAN B ONE-STEP [Suspect]
     Active Substance: LEVONORGESTREL
     Dates: start: 20160428, end: 20160428

REACTIONS (5)
  - Pregnancy after post coital contraception [Unknown]
  - Exposure during pregnancy [Unknown]
  - Vaginal haemorrhage [Recovered/Resolved]
  - Amniotic fluid volume decreased [Not Recovered/Not Resolved]
  - Umbilical cord vascular disorder [Not Recovered/Not Resolved]

NARRATIVE: CASE EVENT DATE: 20160416
